FAERS Safety Report 8533894-9 (Version None)
Quarter: 2012Q3

REPORT INFORMATION
  Report Type: 
  Country: None (occurrence: None)
  Receive Date: 20120724
  Receipt Date: 20120710
  Transmission Date: 20120928
  Serious: Yes (Other)
  Sender: FDA-Public Use
  Company Number: AU-JNJFOC-20111111470

PATIENT
  Sex: Female
  Weight: 60 kg

DRUGS (7)
  1. VITAMIN D [Concomitant]
     Route: 065
  2. PREDNISOLONE [Concomitant]
     Route: 065
  3. CALCIUM CARBONATE [Concomitant]
     Route: 065
  4. PREDNISOLONE [Concomitant]
     Dosage: 50 MG IN NOV AND TAPERED TO 0 MG
     Route: 065
  5. ELEVIT [Concomitant]
     Route: 065
  6. REMICADE [Suspect]
     Indication: CROHN'S DISEASE
     Dosage: DOSE INCREASED
     Route: 042
  7. REMICADE [Suspect]
     Dosage: 6 OR 8 WEEKS
     Route: 042
     Dates: start: 20060101

REACTIONS (3)
  - DRUG INEFFECTIVE [None]
  - PREMATURE LABOUR [None]
  - MATERNAL EXPOSURE DURING PREGNANCY [None]
